FAERS Safety Report 5848084-8 (Version None)
Quarter: 2008Q3

REPORT INFORMATION
  Report Type: 
  Country: None (occurrence: None)
  Receive Date: 20080814
  Receipt Date: 20080814
  Transmission Date: 20090109
  Serious: No
  Sender: FDA-Public Use
  Company Number: None

PATIENT
  Sex: Male
  Weight: 81.6475 kg

DRUGS (5)
  1. INVEGA [Suspect]
     Indication: PSYCHOTIC DISORDER
     Dosage: 9 MG QAM AND Q 3PM ORAL
     Route: 048
     Dates: start: 20080414, end: 20080415
  2. LITHIUM CARBONATE [Concomitant]
  3. ZIPRASIDONE HCL [Concomitant]
  4. LAMICTAL [Concomitant]
  5. WELLBUTRIN SR [Concomitant]

REACTIONS (1)
  - HYPERPROLACTINAEMIA [None]
